FAERS Safety Report 25741356 (Version 6)
Quarter: 2025Q4

REPORT INFORMATION
  Report Type: Report from Study
  Country: US (occurrence: US)
  Receive Date: 20250829
  Receipt Date: 20251014
  Transmission Date: 20260118
  Serious: Yes (Hospitalization, Disabling, Other)
  Sender: ABBVIE
  Company Number: US-ABBVIE-6372585

PATIENT
  Age: 69 Year
  Sex: Male

DRUGS (17)
  1. SKYRIZI [Suspect]
     Active Substance: RISANKIZUMAB-RZAA
     Indication: Crohn^s disease
     Dosage: 4TH DOSE WITH OBI
     Route: 058
     Dates: start: 20250724, end: 20250724
  2. SKYRIZI [Suspect]
     Active Substance: RISANKIZUMAB-RZAA
     Indication: Ankylosing spondylitis
  3. SKYRIZI [Suspect]
     Active Substance: RISANKIZUMAB-RZAA
     Indication: Crohn^s disease
     Dosage: INFUSION 1
     Route: 042
     Dates: start: 20250315, end: 20250315
  4. SKYRIZI [Suspect]
     Active Substance: RISANKIZUMAB-RZAA
     Indication: Crohn^s disease
     Dosage: INFUSION 3
     Route: 042
     Dates: start: 202506, end: 202506
  5. SKYRIZI [Suspect]
     Active Substance: RISANKIZUMAB-RZAA
     Indication: Crohn^s disease
     Dosage: INFUSION 2
     Route: 042
     Dates: start: 20250424, end: 20250424
  6. PREDNISONE [Concomitant]
     Active Substance: PREDNISONE
     Indication: Product used for unknown indication
  7. BYSTOLIC [Concomitant]
     Active Substance: NEBIVOLOL HYDROCHLORIDE
     Indication: Product used for unknown indication
  8. AMBIEN [Concomitant]
     Active Substance: ZOLPIDEM TARTRATE
     Indication: Insomnia
  9. PRILOSEC [Concomitant]
     Active Substance: OMEPRAZOLE MAGNESIUM
     Indication: Gastrooesophageal reflux disease
  10. MELATONIN [Concomitant]
     Active Substance: MELATONIN
     Indication: Product used for unknown indication
  11. BUSPAR [Concomitant]
     Active Substance: BUSPIRONE HYDROCHLORIDE
     Indication: Anxiety
     Dosage: TIME INTERVAL: AS NECESSARY
  12. ZOFRAN [Concomitant]
     Active Substance: ONDANSETRON HYDROCHLORIDE
     Indication: Nausea
     Dosage: TIME INTERVAL: AS NECESSARY
  13. DEXAMETHASONE [Concomitant]
     Active Substance: DEXAMETHASONE
     Indication: Product used for unknown indication
  14. BENADRYL [Concomitant]
     Active Substance: DIPHENHYDRAMINE HYDROCHLORIDE
     Indication: Product used for unknown indication
  15. VALIUM [Concomitant]
     Active Substance: DIAZEPAM
     Indication: Product used for unknown indication
  16. DITROPAN [Concomitant]
     Active Substance: OXYBUTYNIN CHLORIDE
     Indication: Product used for unknown indication
  17. BUDESONIDE [Concomitant]
     Active Substance: BUDESONIDE
     Indication: Product used for unknown indication

REACTIONS (36)
  - Medical procedure [Unknown]
  - Skin lesion [Unknown]
  - Impaired quality of life [Not Recovered/Not Resolved]
  - Disability [Unknown]
  - Influenza like illness [Recovered/Resolved]
  - Fatigue [Recovered/Resolved]
  - Arthralgia [Recovering/Resolving]
  - Adverse drug reaction [Not Recovered/Not Resolved]
  - Pruritus [Recovered/Resolved]
  - Stevens-Johnson syndrome [Unknown]
  - Night sweats [Unknown]
  - Nausea [Unknown]
  - Rash [Recovered/Resolved]
  - Loss of personal independence in daily activities [Unknown]
  - Papule [Unknown]
  - Flushing [Unknown]
  - Diarrhoea [Unknown]
  - Skin reaction [Unknown]
  - Erythema [Unknown]
  - Rash erythematous [Unknown]
  - Rash papular [Unknown]
  - Rash pruritic [Unknown]
  - Adverse drug reaction [Unknown]
  - Pruritus [Unknown]
  - Rash pruritic [Recovered/Resolved]
  - Haemangioma of skin [Unknown]
  - Rash [Unknown]
  - Mobility decreased [Unknown]
  - Loss of personal independence in daily activities [Unknown]
  - Haemangioma rupture [Unknown]
  - Skin haemorrhage [Unknown]
  - Rash vesicular [Recovered/Resolved]
  - Rash macular [Recovered/Resolved]
  - Rash pruritic [Unknown]
  - Haemangioma of skin [Unknown]
  - Product use in unapproved indication [Unknown]

NARRATIVE: CASE EVENT DATE: 20250101
